FAERS Safety Report 24136035 (Version 2)
Quarter: 2024Q3

REPORT INFORMATION
  Report Type: Spontaneous
  Country: IN (occurrence: IN)
  Receive Date: 20240725
  Receipt Date: 20240813
  Transmission Date: 20241016
  Serious: Yes (Other)
  Sender: PFIZER
  Company Number: IN-PFIZER INC-PV202200097869

PATIENT
  Age: 61 Year
  Sex: Female

DRUGS (2)
  1. DACOMITINIB [Suspect]
     Active Substance: DACOMITINIB
     Indication: Lung adenocarcinoma
     Dosage: 45 MG, 1X/DAY
     Route: 048
  2. DACOMITINIB [Suspect]
     Active Substance: DACOMITINIB
     Dosage: 30 MG, 1X/DAY
     Route: 048
     Dates: end: 2024

REACTIONS (5)
  - Dysentery [Unknown]
  - Mucosal inflammation [Unknown]
  - Diarrhoea [Unknown]
  - Tooth extraction [Unknown]
  - Endodontic procedure [Unknown]

NARRATIVE: CASE EVENT DATE: 20240601
